FAERS Safety Report 8366714-6 (Version None)
Quarter: 2012Q1

REPORT INFORMATION
  Report Type: 
  Country: None (occurrence: None)
  Receive Date: 20120323
  Receipt Date: 20110411
  Transmission Date: 20120608
  Serious: Yes (Other)
  Sender: FDA-Public Use
  Company Number: 163-21880-11041257

PATIENT
  Age: 86 Year
  Sex: Female
  Weight: 55.7924 kg

DRUGS (2)
  1. REVLIMID [Suspect]
     Indication: MULTIPLE MYELOMA
     Dosage: 25 MG, D1-21, PO ; 15 MG, D1-21, PO
     Route: 048
     Dates: start: 20100702, end: 20110301
  2. REVLIMID [Suspect]
     Indication: MULTIPLE MYELOMA
     Dosage: 25 MG, D1-21, PO ; 15 MG, D1-21, PO
     Route: 048
     Dates: start: 20110101

REACTIONS (1)
  - PANCYTOPENIA [None]
